FAERS Safety Report 7754170-8 (Version None)
Quarter: 2011Q3

REPORT INFORMATION
  Report Type: 
  Country: None (occurrence: None)
  Receive Date: 20110913
  Receipt Date: 20110830
  Transmission Date: 20111222
  Serious: Yes (Hospitalization)
  Sender: FDA-Public Use
  Company Number: 2011S1001249

PATIENT
  Sex: Female
  Weight: 88 kg

DRUGS (4)
  1. NORCO [Concomitant]
  2. LIVALO [Suspect]
     Dosage: 2 MG; BIW; PO
     Route: 048
     Dates: start: 20110801, end: 20110809
  3. PRINZIDE [Concomitant]
  4. PROZAC [Concomitant]

REACTIONS (4)
  - BLOOD CREATININE INCREASED [None]
  - DYSPNOEA [None]
  - WEIGHT INCREASED [None]
  - FLUID RETENTION [None]
